FAERS Safety Report 9180269 (Version 4)
Quarter: 2014Q1

REPORT INFORMATION
  Report Type: Spontaneous
  Country: US (occurrence: US)
  Receive Date: 20130322
  Receipt Date: 20140220
  Transmission Date: 20141002
  Serious: Yes (Death, Hospitalization, Other)
  Sender: FDA-Public Use
  Company Number: US-BIOGENIDEC-2013BI024406

PATIENT
  Age: 47 Year
  Sex: Female

DRUGS (1)
  1. AVONEX [Suspect]
     Indication: MULTIPLE SCLEROSIS
     Route: 030
     Dates: start: 20120330, end: 20130405

REACTIONS (5)
  - Pneumonia [Fatal]
  - Urinary tract infection [Fatal]
  - Transfusion [Unknown]
  - Decubitus ulcer [Fatal]
  - White blood cell count decreased [Unknown]
